FAERS Safety Report 23352342 (Version 2)
Quarter: 2024Q1

REPORT INFORMATION
  Report Type: Spontaneous
  Country: GB (occurrence: GB)
  Receive Date: 20231229
  Receipt Date: 20240115
  Transmission Date: 20240409
  Serious: Yes (Death, Hospitalization, Other)
  Sender: FDA-Public Use
  Company Number: GB-CLINIGEN-GB-CLI-2023-043384

PATIENT

DRUGS (75)
  1. ALDESLEUKIN [Suspect]
     Active Substance: ALDESLEUKIN
     Indication: Metastatic malignant melanoma
     Dosage: 1.86 MILLION INTERNATIONAL UNIT, QD
     Route: 042
     Dates: start: 20230822, end: 20230824
  2. ALDESLEUKIN [Suspect]
     Active Substance: ALDESLEUKIN
     Dosage: 1.9 MILLION INTERNATIONAL UNIT, QD
     Route: 042
     Dates: start: 20230825, end: 20230827
  3. ALDESLEUKIN [Suspect]
     Active Substance: ALDESLEUKIN
     Dosage: 1.9 MILLION INTERNATIONAL UNIT, QD
     Route: 042
     Dates: start: 20230829, end: 20230829
  4. GENETICALLY-MODIFIED AUTOLOGOUS T CELLS NOS [Suspect]
     Active Substance: GENETICALLY-MODIFIED AUTOLOGOUS T CELLS NOS
     Indication: Metastatic malignant melanoma
     Dosage: UNK
     Route: 042
     Dates: start: 20230822, end: 20230822
  5. FLUDARABINE [Suspect]
     Active Substance: FLUDARABINE PHOSPHATE
     Indication: Metastatic malignant melanoma
     Dosage: 55 MILLIGRAM, QD
     Route: 042
     Dates: start: 20230816, end: 20230818
  6. CYCLOPHOSPHAMIDE [Suspect]
     Active Substance: CYCLOPHOSPHAMIDE
     Indication: Metastatic malignant melanoma
     Dosage: 550 MG, QD
     Route: 042
     Dates: start: 20230816, end: 20230818
  7. NIVOLUMAB [Suspect]
     Active Substance: NIVOLUMAB
     Indication: Metastatic malignant melanoma
     Dosage: 240 MG
     Route: 042
     Dates: start: 20230815, end: 20230815
  8. ACYCLOVIR [Concomitant]
     Active Substance: ACYCLOVIR
     Indication: Prophylaxis
     Dosage: 400 MG, BID
     Route: 048
     Dates: start: 20230816, end: 20230911
  9. CALCIUM CARBONATE\CHOLECALCIFEROL [Concomitant]
     Active Substance: CALCIUM CARBONATE\CHOLECALCIFEROL
     Indication: Hypocalcaemia
     Dosage: 3000/800 UNITS
     Dates: start: 20230822, end: 20230823
  10. CHLORPHENIRAMINE MALEATE [Concomitant]
     Active Substance: CHLORPHENIRAMINE MALEATE
     Indication: Premedication
     Dosage: 10 MG
     Route: 042
     Dates: start: 20230822, end: 20230822
  11. CHOLECALCIFEROL [Concomitant]
     Active Substance: CHOLECALCIFEROL
     Indication: Supplementation therapy
     Dosage: 800 INTERNATIONAL UNIT, QD
     Route: 048
     Dates: start: 20200101
  12. CHOLECALCIFEROL [Concomitant]
     Active Substance: CHOLECALCIFEROL
     Indication: Vitamin D deficiency
     Dosage: 800 INTERNATIONAL UNIT
     Route: 048
     Dates: start: 20200101, end: 20230923
  13. CLARITHROMYCIN [Concomitant]
     Active Substance: CLARITHROMYCIN
     Indication: Prophylaxis
     Dosage: 500 MG, TIW
     Route: 048
     Dates: start: 20230830
  14. CLARITHROMYCIN [Concomitant]
     Active Substance: CLARITHROMYCIN
     Indication: Pneumocystis jirovecii pneumonia
  15. COTRIMOXAZOLE [Concomitant]
     Active Substance: SULFAMETHOXAZOLE\TRIMETHOPRIM
     Indication: Atypical pneumonia
     Dosage: 480 MG, BID THREE TIMES A WEEK
     Dates: start: 20230816, end: 20230817
  16. COTRIMOXAZOLE [Concomitant]
     Active Substance: SULFAMETHOXAZOLE\TRIMETHOPRIM
     Dosage: UNK UNK, WEEKLY
     Dates: start: 20230817, end: 20230829
  17. ENOXAPARIN [Concomitant]
     Active Substance: ENOXAPARIN
     Indication: Deep vein thrombosis
     Dosage: 100 MG
     Route: 058
     Dates: start: 20230816, end: 20230821
  18. ENOXAPARIN [Concomitant]
     Active Substance: ENOXAPARIN
     Dosage: 60, 80 MG
     Route: 058
     Dates: start: 20230822, end: 20230830
  19. ENOXAPARIN [Concomitant]
     Active Substance: ENOXAPARIN
     Dosage: 100 MG, QD
     Route: 058
     Dates: start: 20230831, end: 20230831
  20. ENOXAPARIN [Concomitant]
     Active Substance: ENOXAPARIN
     Dosage: 40 MG, QD
     Route: 058
     Dates: start: 20230902, end: 20230902
  21. ENOXAPARIN [Concomitant]
     Active Substance: ENOXAPARIN
     Dosage: 100 MG, QD
     Route: 058
     Dates: start: 20230904, end: 20230909
  22. FAMOTIDINE [Concomitant]
     Active Substance: FAMOTIDINE
     Indication: Gastrooesophageal reflux disease
     Dosage: 20 MG, QD
     Route: 048
     Dates: start: 20230818, end: 20230910
  23. FLUCONAZOLE [Concomitant]
     Active Substance: FLUCONAZOLE
     Indication: Prophylaxis
     Dosage: 100 MG
     Route: 048
     Dates: start: 20230816, end: 20230908
  24. FUROSEMIDE [Concomitant]
     Active Substance: FUROSEMIDE
     Indication: Pulmonary oedema
     Dosage: 400 MG
     Route: 042
     Dates: start: 20230817, end: 20230817
  25. FUROSEMIDE [Concomitant]
     Active Substance: FUROSEMIDE
     Dosage: 40 MG
     Route: 042
     Dates: start: 20230827, end: 20230827
  26. FUROSEMIDE [Concomitant]
     Active Substance: FUROSEMIDE
     Dosage: 40 MG
     Route: 042
     Dates: start: 20230829, end: 20230901
  27. FUROSEMIDE [Concomitant]
     Active Substance: FUROSEMIDE
     Dosage: 20 MG
     Route: 042
     Dates: start: 20230820, end: 20230820
  28. FUROSEMIDE [Concomitant]
     Active Substance: FUROSEMIDE
     Dosage: 40 MG
     Route: 042
     Dates: start: 20230904, end: 20230906
  29. HYDROCORTISONE [Concomitant]
     Active Substance: HYDROCORTISONE
     Indication: Adrenal insufficiency
     Dosage: 20/10/2010 MG
     Route: 048
     Dates: start: 20230601, end: 20230911
  30. HYDROCORTISONE [Concomitant]
     Active Substance: HYDROCORTISONE
     Indication: Chemotherapy cardiotoxicity attenuation
     Dosage: 20,10,10MG (20MG OM,10MG LUNCH AND EVENING)
     Route: 048
     Dates: start: 20230601
  31. HYDROCORTISONE [Concomitant]
     Active Substance: HYDROCORTISONE
     Dosage: 10/05/2005 MG
     Route: 048
  32. KCL [Concomitant]
     Active Substance: POTASSIUM CHLORIDE
     Indication: Product used for unknown indication
     Dosage: 6 GM
     Route: 042
     Dates: start: 20230830, end: 20230830
  33. POLYETHYLENE GLYCOL 3350\POTASSIUM CHLORIDE\SODIUM BICARBONATE\SODIUM [Concomitant]
     Active Substance: POLYETHYLENE GLYCOL 3350\POTASSIUM CHLORIDE\SODIUM BICARBONATE\SODIUM CHLORIDE
     Indication: Constipation
     Dosage: 1 SACHET
     Route: 048
     Dates: start: 20230118
  34. LEVETIRACETAM [Concomitant]
     Active Substance: LEVETIRACETAM
     Indication: Seizure prophylaxis
     Dosage: 500 MG, BID
     Route: 048
     Dates: start: 20230824, end: 20230906
  35. LEVETIRACETAM [Concomitant]
     Active Substance: LEVETIRACETAM
     Dosage: 1000 MG, BID
     Route: 048
     Dates: start: 20230906, end: 20230921
  36. LEVOTHYROXINE [Concomitant]
     Active Substance: LEVOTHYROXINE
     Indication: Hyperthyroidism
     Dosage: 125 MG, QD
     Route: 048
     Dates: start: 20200101, end: 20230928
  37. METOCLOPRAMIDE [Concomitant]
     Active Substance: METOCLOPRAMIDE
     Indication: Nausea
     Dosage: 10 MG, TID
     Route: 048
     Dates: start: 20230701, end: 20230915
  38. IRON ISOMALTOSIDE 1000 [Concomitant]
     Active Substance: IRON ISOMALTOSIDE 1000
     Indication: Anaemia
     Dosage: 1000 MG
     Route: 042
     Dates: start: 20230531, end: 20230831
  39. MORPHINE [Concomitant]
     Active Substance: MORPHINE
     Indication: Pain
     Dosage: 5 MG, BID
     Route: 048
     Dates: start: 20220303, end: 20230928
  40. MORPHINE SULFATE [Concomitant]
     Active Substance: MORPHINE SULFATE
     Indication: Pain
     Dosage: 5 MG, PRN
     Route: 048
     Dates: start: 20220303, end: 20231005
  41. MOVICOL [Concomitant]
     Active Substance: POLYETHYLENE GLYCOL 3350\POTASSIUM CHLORIDE\SODIUM BICARBONATE\SODIUM CHLORIDE
     Indication: Constipation
     Dosage: 1 SACHET
     Route: 048
     Dates: start: 20230814, end: 20231001
  42. NYSTATIN [Concomitant]
     Active Substance: NYSTATIN
     Indication: Oral candidiasis
     Dosage: 1000,000 UNITS
     Route: 048
     Dates: start: 20230823, end: 20230830
  43. ACETAMINOPHEN [Concomitant]
     Active Substance: ACETAMINOPHEN
     Indication: Analgesic therapy
     Dosage: 4 GM (1 GM,4 IN 1 D)
     Route: 048
     Dates: start: 20220303
  44. SODIUM PHOSPHATE, MONOBASIC, ANHYDROUS [Concomitant]
     Active Substance: SODIUM PHOSPHATE, MONOBASIC, ANHYDROUS
     Indication: Blood phosphorus decreased
     Dosage: 32.2 MILLIMOLE, TID
     Route: 048
     Dates: start: 20230823, end: 20230824
  45. PIPERACILLIN SODIUM\TAZOBACTAM SODIUM [Concomitant]
     Active Substance: PIPERACILLIN SODIUM\TAZOBACTAM SODIUM
     Indication: Lower respiratory tract infection
     Dosage: 18 MG (4MG 4 TIMES A DAY)
     Route: 042
     Dates: start: 20230824, end: 20230831
  46. PLATELETS [Concomitant]
     Active Substance: HUMAN PLATELET, ALLOGENIC
     Indication: Platelet count decreased
     Dosage: 1 POOL ONCE
     Route: 042
     Dates: start: 20230829, end: 20230829
  47. PLATELETS [Concomitant]
     Active Substance: HUMAN PLATELET, ALLOGENIC
     Dosage: 1 POOL ONCE
     Route: 042
     Dates: start: 20230830, end: 20230830
  48. PLATELETS [Concomitant]
     Active Substance: HUMAN PLATELET, ALLOGENIC
     Dosage: 2 POOLS ONCE
     Route: 042
     Dates: start: 20230831, end: 20230831
  49. PLATELETS [Concomitant]
     Active Substance: HUMAN PLATELET, ALLOGENIC
     Dosage: 1 POOL ONCE
     Route: 042
     Dates: start: 20230906, end: 20230906
  50. PLATELETS [Concomitant]
     Active Substance: HUMAN PLATELET, ALLOGENIC
     Dosage: 1 POOL ONCE
     Route: 042
     Dates: start: 20230907, end: 20230907
  51. PLATELETS [Concomitant]
     Active Substance: HUMAN PLATELET, ALLOGENIC
     Dosage: 1 POOL ONCE
     Route: 042
     Dates: start: 20230908, end: 20230908
  52. PLATELETS [Concomitant]
     Active Substance: HUMAN PLATELET, ALLOGENIC
     Dosage: 1 POOL ONCE
     Route: 042
     Dates: start: 20230909, end: 20230909
  53. PLATELETS [Concomitant]
     Active Substance: HUMAN PLATELET, ALLOGENIC
     Dosage: 1 POOL ONCE
     Route: 042
     Dates: start: 20230901, end: 20230901
  54. POTASSIUM CHLORIDE [Concomitant]
     Active Substance: POTASSIUM CHLORIDE
     Indication: Hypokalaemia
     Dosage: 600 MG, BID
     Route: 048
     Dates: start: 20230908, end: 20230912
  55. HUMAN RED BLOOD CELL [Concomitant]
     Active Substance: HUMAN RED BLOOD CELL
     Indication: Fatigue
     Dosage: 1 UNIT ONCE
     Route: 042
     Dates: start: 20230814, end: 20230814
  56. HUMAN RED BLOOD CELL [Concomitant]
     Active Substance: HUMAN RED BLOOD CELL
     Indication: Anaemia
     Dosage: 2 UNITS ONCE
     Route: 042
     Dates: start: 20230821, end: 20230821
  57. HUMAN RED BLOOD CELL [Concomitant]
     Active Substance: HUMAN RED BLOOD CELL
     Indication: Haemoglobin decreased
     Dosage: 1 UNIT ONCE
     Route: 042
     Dates: start: 20230816, end: 20230816
  58. TAUROLIDINE [Concomitant]
     Active Substance: TAUROLIDINE
     Indication: Prophylaxis
     Dosage: 500 INTERNATIONAL UNIT, PRN
     Route: 042
     Dates: start: 20230822
  59. MORPHINE SULFATE [Concomitant]
     Active Substance: MORPHINE SULFATE
     Indication: Pain
     Dosage: 70 MG, BID
     Route: 048
     Dates: start: 20230814, end: 20230914
  60. MORPHINE SULFATE [Concomitant]
     Active Substance: MORPHINE SULFATE
     Dosage: 60 MG, BID
     Route: 048
     Dates: start: 20230411, end: 20230814
  61. AMOXICILLIN\CLAVULANATE POTASSIUM [Concomitant]
     Active Substance: AMOXICILLIN\CLAVULANATE POTASSIUM
     Indication: C-reactive protein increased
     Dosage: 1200 MG, TID
     Route: 042
     Dates: start: 20230818, end: 20230823
  62. AMOXICILLIN\CLAVULANATE POTASSIUM [Concomitant]
     Active Substance: AMOXICILLIN\CLAVULANATE POTASSIUM
     Indication: Lower respiratory tract infection
     Dosage: 625 MG,2 X 625 MG THEN SWITCHED TO IV
     Route: 042
     Dates: start: 20230817, end: 20230818
  63. ONDANSETRON [Concomitant]
     Active Substance: ONDANSETRON
     Indication: Illness
     Dosage: 8 MG, BID, ORAL/IV
     Dates: start: 20230816, end: 20230901
  64. POTASSIUM [Concomitant]
     Active Substance: POTASSIUM
     Indication: Hypokalaemia
     Dosage: 24 MILLIMOLE, TID
     Route: 048
     Dates: start: 20230816, end: 20230820
  65. POTASSIUM [Concomitant]
     Active Substance: POTASSIUM
     Dosage: 24 MILLIMOLE, TID
     Route: 048
     Dates: start: 20230822, end: 20230825
  66. POTASSIUM [Concomitant]
     Active Substance: POTASSIUM
     Dosage: 24 MILLIMOLE, TID
     Route: 048
     Dates: start: 20230829, end: 20230901
  67. AMILORIDE [Concomitant]
     Active Substance: AMILORIDE
     Indication: Hypokalaemia
     Dosage: 5 GM,
     Route: 048
     Dates: start: 20230831, end: 20230906
  68. AMILORIDE [Concomitant]
     Active Substance: AMILORIDE
     Dosage: 10 MG, QD
     Route: 048
     Dates: start: 20230908, end: 20230924
  69. CIPROFLOXACIN [Concomitant]
     Active Substance: CIPROFLOXACIN
     Indication: Infection
     Dosage: 250 MILLIGRAM, BID
     Route: 048
     Dates: start: 20230831, end: 20230905
  70. AMLODIPINE [Concomitant]
     Active Substance: AMLODIPINE BESYLATE
     Indication: Hypertension
     Dosage: 5 MG, QD
     Route: 048
     Dates: start: 20230902, end: 20230907
  71. AMLODIPINE [Concomitant]
     Active Substance: AMLODIPINE BESYLATE
     Dosage: 10 MG, QD
     Route: 047
     Dates: start: 20230907, end: 20230928
  72. AZITHROMYCIN [Concomitant]
     Active Substance: AZITHROMYCIN
     Indication: Prophylaxis
     Dosage: 500 MG, TIW
     Route: 048
     Dates: start: 20230830, end: 20230927
  73. AZITHROMYCIN [Concomitant]
     Active Substance: AZITHROMYCIN
     Indication: Pneumocystis jirovecii pneumonia
  74. DOXAZOSIN [Concomitant]
     Active Substance: DOXAZOSIN MESYLATE
     Indication: Hypertension
     Dosage: 2 MG, TID
     Route: 048
     Dates: start: 20230907, end: 20230920
  75. FORTIJUICE [Concomitant]
     Indication: Nutritional supplementation
     Dosage: 1 BOTTLE
     Route: 048
     Dates: start: 20230907, end: 20230913

REACTIONS (5)
  - Immune effector cell-associated neurotoxicity syndrome [Recovering/Resolving]
  - Pneumonia aspiration [Fatal]
  - Cytokine release syndrome [Unknown]
  - Cerebrovascular accident [Fatal]
  - Hypoxia [Unknown]

NARRATIVE: CASE EVENT DATE: 20230824
